FAERS Safety Report 9393455 (Version 1)
Quarter: 2013Q3

REPORT INFORMATION
  Report Type: Spontaneous
  Country: FR (occurrence: None)
  Receive Date: 20130705
  Receipt Date: 20130705
  Transmission Date: 20140515
  Serious: Yes (Hospitalization)
  Sender: FDA-Public Use
  Company Number: FR-023385

PATIENT
  Age: 76 Year
  Sex: Female

DRUGS (6)
  1. CHLORAMBUCIL [Suspect]
     Indication: CHRONIC LYMPHOCYTIC LEUKAEMIA
     Dosage: 50 MG EVERY TWO WEEKS (50 MG, 1 IN 2 WEEKS), ORAL
     Route: 048
     Dates: start: 20110606
  2. STUDY MEDICATION [Suspect]
     Indication: CHRONIC LYMPHOCYTIC LEUKAEMIA
     Dosage: 1000MG EVERY TWO WEEKS (1000 MG, 1 IN 2 WEEKS), INTRAVENOUS
     Route: 042
     Dates: start: 20110106
  3. ALLOPURINOL [Concomitant]
  4. CARDENSIEL (BISOPROLOL) [Concomitant]
  5. BACTRIM FORTE (SULFAMETHOXAZOLE AND TRIMETHOPRIM) [Concomitant]
  6. VALACICLOVIR (VALACICLOVIR) [Concomitant]

REACTIONS (1)
  - Escherichia sepsis [None]
